FAERS Safety Report 9900751 (Version 1)
Quarter: 2014Q1

REPORT INFORMATION
  Report Type: Spontaneous
  Country: IN (occurrence: IN)
  Receive Date: 20140217
  Receipt Date: 20140217
  Transmission Date: 20141002
  Serious: Yes (Hospitalization, Other)
  Sender: FDA-Public Use
  Company Number: IN-RANBAXY-2014R1-77977

PATIENT
  Age: 43 Year
  Sex: Male

DRUGS (3)
  1. PENTAZOCINE LACTATE [Suspect]
     Indication: MIGRAINE
     Dosage: UNK
     Route: 042
  2. PENTAZOCINE LACTATE [Suspect]
     Dosage: UNK
     Route: 030
  3. PROMETHAZINE [Concomitant]
     Indication: MIGRAINE
     Dosage: UNK
     Route: 065

REACTIONS (4)
  - Pyomyositis [Recovered/Resolved]
  - Sinus perforation [Recovered/Resolved]
  - Drug withdrawal syndrome [Unknown]
  - Convulsion [Unknown]
